FAERS Safety Report 15622789 (Version 1)
Quarter: 2018Q4

REPORT INFORMATION
  Report Type: Spontaneous
  Country: GB (occurrence: GB)
  Receive Date: 20181115
  Receipt Date: 20181115
  Transmission Date: 20190205
  Serious: Yes (Hospitalization, Disabling, Other)
  Sender: FDA-Public Use
  Company Number: GB-TEVA-2018-GB-975158

PATIENT
  Age: 80 Year
  Sex: Female
  Weight: 57 kg

DRUGS (2)
  1. ALLOPURINOL. [Suspect]
     Active Substance: ALLOPURINOL
     Dosage: 100 MILLIGRAM DAILY;
     Route: 048
     Dates: start: 20180821, end: 20180827
  2. COLCHICINE. [Suspect]
     Active Substance: COLCHICINE
     Dosage: 3 DOSAGE FORMS DAILY;
     Route: 048
     Dates: start: 20180816, end: 20180821

REACTIONS (11)
  - Diarrhoea [Recovered/Resolved with Sequelae]
  - Skin exfoliation [Not Recovered/Not Resolved]
  - Malaise [Recovered/Resolved with Sequelae]
  - Mouth ulceration [Recovering/Resolving]
  - Mouth haemorrhage [Not Recovered/Not Resolved]
  - Rash [Recovering/Resolving]
  - Blister [Not Recovered/Not Resolved]
  - Influenza like illness [Recovering/Resolving]
  - Pyrexia [Recovered/Resolved with Sequelae]
  - Oral fungal infection [Not Recovered/Not Resolved]
  - Vomiting [Recovered/Resolved with Sequelae]

NARRATIVE: CASE EVENT DATE: 20180908
